FAERS Safety Report 6428288-6 (Version None)
Quarter: 2009Q4

REPORT INFORMATION
  Report Type: 
  Country: None (occurrence: None)
  Receive Date: 20091030
  Receipt Date: 20091015
  Transmission Date: 20100525
  Serious: Yes (Other)
  Sender: FDA-Public Use
  Company Number: THQ2009A04595

PATIENT
  Age: 66 Year
  Sex: Male

DRUGS (7)
  1. LANSOPRAZOLE [Suspect]
     Indication: REFLUX OESOPHAGITIS
     Dosage: 30 MG PER ORAL
     Route: 048
  2. ATACAND [Concomitant]
  3. VIAGRA [Concomitant]
  4. RAMIPRIL [Concomitant]
  5. DIAMICRON (GLICLAZIDE) [Concomitant]
  6. GLUCOPHAGE [Concomitant]
  7. PRAVASTATIN SODIUM [Concomitant]

REACTIONS (6)
  - DYSPNOEA EXERTIONAL [None]
  - FLATULENCE [None]
  - HEART RATE IRREGULAR [None]
  - HEART SOUNDS ABNORMAL [None]
  - PALPITATIONS [None]
  - SLEEP APNOEA SYNDROME [None]
